FAERS Safety Report 25795468 (Version 1)
Quarter: 2025Q3

REPORT INFORMATION
  Report Type: Spontaneous
  Country: US (occurrence: None)
  Receive Date: 20250911
  Receipt Date: 20250911
  Transmission Date: 20251021
  Serious: Yes (Hospitalization)
  Sender: FDA-CTU
  Company Number: None

PATIENT
  Sex: Female

DRUGS (2)
  1. ACTEMRA ACTPEN [Suspect]
     Active Substance: TOCILIZUMAB
     Indication: Rheumatoid arthritis
     Dosage: INJECT 162 MG UNDER THE SKIN (SUBCUTANEOUS INJECTION) WEEKLY?
     Route: 058
  2. MULTIVITAMIN TAB WOMEN [Concomitant]

REACTIONS (4)
  - Nasopharyngitis [None]
  - Lung disorder [None]
  - Intentional dose omission [None]
  - Loss of personal independence in daily activities [None]
